FAERS Safety Report 22387257 (Version 3)
Quarter: 2025Q3

REPORT INFORMATION
  Report Type: Report from Study
  Country: JP (occurrence: JP)
  Receive Date: 20230531
  Receipt Date: 20250809
  Transmission Date: 20251020
  Serious: Yes (Hospitalization, Other)
  Sender: ALEXION PHARMACEUTICALS
  Company Number: 2023A122723

PATIENT
  Age: 67 Year
  Sex: Male
  Weight: 69 kg

DRUGS (13)
  1. DURVALUMAB [Suspect]
     Active Substance: DURVALUMAB
     Indication: Hepatocellular carcinoma
     Dosage: 500 MILLIGRAM, Q4W
     Dates: start: 20230418, end: 20230418
  2. DURVALUMAB [Suspect]
     Active Substance: DURVALUMAB
     Dosage: 500 MILLIGRAM, Q4W
     Dates: start: 20230620
  3. TREMELIMUMAB [Suspect]
     Active Substance: TREMELIMUMAB
     Indication: Hepatocellular carcinoma
     Dosage: 25 MILLIGRAM, Q4W
     Dates: start: 20230418, end: 20230418
  4. PREDNISOLONE [Suspect]
     Active Substance: PREDNISOLONE
     Indication: Pyrexia
     Route: 065
  5. PREDNISOLONE [Suspect]
     Active Substance: PREDNISOLONE
     Indication: Enterocolitis
     Route: 065
     Dates: start: 20230506, end: 20231204
  6. PREDNISOLONE [Suspect]
     Active Substance: PREDNISOLONE
     Indication: Adrenal insufficiency
     Route: 065
  7. PREDNISOLONE [Suspect]
     Active Substance: PREDNISOLONE
     Route: 065
     Dates: start: 20230506, end: 20230511
  8. PREDNISOLONE [Suspect]
     Active Substance: PREDNISOLONE
     Route: 065
     Dates: start: 20230512, end: 20230515
  9. PREDNISOLONE [Suspect]
     Active Substance: PREDNISOLONE
     Route: 065
     Dates: start: 20230515, end: 20230518
  10. PREDNISOLONE [Suspect]
     Active Substance: PREDNISOLONE
     Route: 065
     Dates: start: 20230519, end: 20230601
  11. PREDNISOLONE [Suspect]
     Active Substance: PREDNISOLONE
     Route: 065
     Dates: start: 20230602, end: 20230615
  12. PREDNISOLONE [Suspect]
     Active Substance: PREDNISOLONE
     Route: 065
     Dates: start: 20230616, end: 20230706
  13. PREDNISOLONE [Suspect]
     Active Substance: PREDNISOLONE
     Route: 065
     Dates: start: 20230707, end: 20231204

REACTIONS (3)
  - Enterocolitis [Recovered/Resolved]
  - Adrenal insufficiency [Not Recovered/Not Resolved]
  - Hypopituitarism [Not Recovered/Not Resolved]

NARRATIVE: CASE EVENT DATE: 20230425
